FAERS Safety Report 4653170-4 (Version None)
Quarter: 2005Q2

REPORT INFORMATION
  Report Type: 
  Country: None (occurrence: None)
  Receive Date: 20050503
  Receipt Date: 20050503
  Transmission Date: 20051028
  Serious: Yes (Death)
  Sender: FDA-Public Use
  Company Number: None

PATIENT
  Sex: Female
  Weight: 63.5036 kg

DRUGS (2)
  1. CLOZAPINE [Suspect]
     Indication: SCHIZOPHRENIA
     Dosage: 100MG
  2. TRILEPTAL [Suspect]
     Indication: SCHIZOAFFECTIVE DISORDER
     Dosage: 150 MG
     Dates: start: 20040302

REACTIONS (1)
  - DEATH [None]
